FAERS Safety Report 9355182 (Version 1)
Quarter: 2013Q2

REPORT INFORMATION
  Report Type: Spontaneous
  Country: FR (occurrence: FR)
  Receive Date: 20130619
  Receipt Date: 20130619
  Transmission Date: 20140414
  Serious: Yes (Other)
  Sender: FDA-Public Use
  Company Number: PHHY2013FR061206

PATIENT
  Age: 16 Year
  Sex: Male

DRUGS (3)
  1. TRILEPTAL [Suspect]
     Dates: start: 20130502, end: 20130510
  2. TERCIAN [Concomitant]
  3. LYSANXIA [Concomitant]

REACTIONS (1)
  - Cell death [Recovering/Resolving]
